FAERS Safety Report 21765073 (Version 2)
Quarter: 2023Q1

REPORT INFORMATION
  Report Type: Spontaneous
  Country: MX (occurrence: MX)
  Receive Date: 20221222
  Receipt Date: 20230117
  Transmission Date: 20230418
  Serious: Yes (Other)
  Sender: FDA-Public Use
  Company Number: MX-ASTELLAS-2022US044839

PATIENT
  Age: 69 Year
  Sex: Male

DRUGS (11)
  1. ENZALUTAMIDE [Suspect]
     Active Substance: ENZALUTAMIDE
     Indication: Prostate cancer
     Dosage: 160 MG, CYCLIC (EVERY 28 DAYS WITH 12 APPLIED CYCLES)
     Route: 048
     Dates: start: 20211201
  2. ENZALUTAMIDE [Suspect]
     Active Substance: ENZALUTAMIDE
     Route: 048
  3. GOSERELIN [Concomitant]
     Active Substance: GOSERELIN
     Indication: Prostate cancer metastatic
     Dosage: UNK UNK, CYCLIC (4 CYCLES)
     Route: 065
  4. GOSERELIN [Concomitant]
     Active Substance: GOSERELIN
     Indication: Prostate cancer
     Dosage: GOSERELINE USE WAS INDICATED AS FOLLOWING: 10.8 MG EVERY 12 WEEKS WITH 4 APPLIED CYCLES
     Route: 065
     Dates: start: 202112
  5. GOSERELIN [Concomitant]
     Active Substance: GOSERELIN
     Dosage: UNK UNK, CYCLIC
     Route: 065
  6. GOSERELIN [Concomitant]
     Active Substance: GOSERELIN
     Dosage: 10.8, EVERY 12 WEEKS
     Dates: start: 20211201
  7. DOCETAXEL [Concomitant]
     Active Substance: DOCETAXEL
     Indication: Product used for unknown indication
     Dosage: UNK UNK, CYCLIC
     Route: 065
  8. DOCETAXEL [Concomitant]
     Active Substance: DOCETAXEL
     Dosage: UNK UNK, CYCLIC
     Route: 065
  9. DOCETAXEL [Concomitant]
     Active Substance: DOCETAXEL
     Dosage: UNK UNK, CYCLIC
     Route: 065
  10. PREDNISONE [Concomitant]
     Active Substance: PREDNISONE
     Indication: Product used for unknown indication
     Dosage: UNK UNK, CYCLIC
     Route: 065
  11. PREDNISONE [Concomitant]
     Active Substance: PREDNISONE
     Dosage: UNK UNK, CYCLIC
     Route: 065

REACTIONS (2)
  - Malignant neoplasm progression [Unknown]
  - Product use issue [Unknown]

NARRATIVE: CASE EVENT DATE: 20211201
